FAERS Safety Report 6690129-X (Version None)
Quarter: 2010Q2

REPORT INFORMATION
  Report Type: 
  Country: None (occurrence: None)
  Receive Date: 20100421
  Receipt Date: 20100416
  Transmission Date: 20101027
  Serious: Yes (Death, Other)
  Sender: FDA-Public Use
  Company Number: PHEH2009US18917

PATIENT
  Sex: Female

DRUGS (3)
  1. EXJADE [Suspect]
     Indication: HAEMOLYTIC ANAEMIA
     Dosage: 1000 MG DAILY
     Route: 048
  2. EXJADE [Suspect]
     Indication: IRON OVERLOAD
  3. CHEMOTHERAPEUTICS NOS [Concomitant]

REACTIONS (4)
  - MYELODYSPLASTIC SYNDROME [None]
  - NEOPLASM RECURRENCE [None]
  - SEPTIC SHOCK [None]
  - SINUS TACHYCARDIA [None]
